FAERS Safety Report 4314126-4 (Version None)
Quarter: 2004Q1

REPORT INFORMATION
  Report Type: 
  Country: None (occurrence: None)
  Receive Date: 20040309
  Receipt Date: 20040217
  Transmission Date: 20041129
  Serious: Yes (Hospitalization)
  Sender: FDA-Public Use
  Company Number: JP-BRISTOL-MYERS SQUIBB COMPANY-12512620

PATIENT
  Age: 68 Year
  Sex: Female

DRUGS (2)
  1. TAXOL [Suspect]
     Indication: FALLOPIAN TUBE CANCER
     Route: 042
     Dates: start: 20040114, end: 20040114
  2. PARAPLATIN [Suspect]
     Indication: FALLOPIAN TUBE CANCER
     Dosage: DOSE = AUC 6
     Route: 042
     Dates: start: 20040114, end: 20040114

REACTIONS (1)
  - INTESTINAL OBSTRUCTION [None]
